FAERS Safety Report 5781595-2 (Version None)
Quarter: 2008Q2

REPORT INFORMATION
  Report Type: 
  Country: None (occurrence: None)
  Receive Date: 20080623
  Receipt Date: 20070718
  Transmission Date: 20081010
  Serious: No
  Sender: FDA-Public Use
  Company Number: US-ASTRAZENECA-2007UW15139

PATIENT
  Age: 39 Year
  Sex: Female
  Weight: 54.4 kg

DRUGS (2)
  1. RHINOCORT [Suspect]
     Indication: RHINITIS
     Dosage: 2 SPRAYS PER NOSTRIL QAM
     Route: 045
  2. RHINOCORT [Suspect]
     Dosage: 2 SPRAYS PER NOSTRIL HS
     Route: 045

REACTIONS (2)
  - ANXIETY [None]
  - DIZZINESS [None]
